FAERS Safety Report 4360536-9 (Version None)
Quarter: 2004Q2

REPORT INFORMATION
  Report Type: 
  Country: None (occurrence: None)
  Receive Date: 20040519
  Receipt Date: 20040504
  Transmission Date: 20050107
  Serious: Yes (Death, Hospitalization)
  Sender: FDA-Public Use
  Company Number: FR-GLAXOSMITHKLINE-B0331646A

PATIENT
  Age: 94 Year
  Sex: Female

DRUGS (6)
  1. AUGMENTIN [Suspect]
     Indication: LUNG DISORDER
     Dosage: 3G PER DAY
     Route: 042
     Dates: start: 20040402, end: 20040403
  2. ACETAMINOPHEN [Concomitant]
     Indication: LUNG DISORDER
     Route: 042
     Dates: start: 20040402
  3. DIGOXIN [Concomitant]
     Route: 048
  4. LOXEN [Concomitant]
     Route: 065
  5. MODURETIC 5-50 [Concomitant]
     Indication: ESSENTIAL HYPERTENSION
     Route: 048
  6. SERESTA [Concomitant]
     Route: 048

REACTIONS (7)
  - LEUKOPENIA [None]
  - LUNG INFECTION [None]
  - MYOCARDIAL INFARCTION [None]
  - NEUTROPENIA [None]
  - PYREXIA [None]
  - SEPTIC SHOCK [None]
  - URINARY TRACT INFECTION [None]
